FAERS Safety Report 6372086-9 (Version None)
Quarter: 2009Q3

REPORT INFORMATION
  Report Type: 
  Country: None (occurrence: None)
  Receive Date: 20090917
  Receipt Date: 20090826
  Transmission Date: 20100115
  Serious: Yes (Death, Hospitalization)
  Sender: FDA-Public Use
  Company Number: 1000005702

PATIENT
  Age: 77 Year
  Sex: Male

DRUGS (10)
  1. MEMANTINE HCL [Suspect]
     Indication: ABNORMAL BEHAVIOUR
     Dosage: 20 MG (20 MG, 1 IN 1 D), ORAL
     Route: 048
     Dates: start: 20080923
  2. LOXAPAC (SOLUTION) [Suspect]
     Indication: ABNORMAL BEHAVIOUR
     Dosage: 9 MG (9 MG, 1 IN 1 D), ORAL
     Route: 048
     Dates: start: 20080923
  3. ATARAX [Concomitant]
  4. TEGRETOL [Concomitant]
  5. XANAX [Concomitant]
  6. ISOPTINE (TABLETS) [Concomitant]
  7. KARDEGIC (POWDER) [Concomitant]
  8. MICARDIS HCT [Concomitant]
  9. TAHOR (TABLETS) [Concomitant]
  10. TANAKAN [Concomitant]

REACTIONS (9)
  - APATHY [None]
  - DECREASED APPETITE [None]
  - EPILEPSY [None]
  - GENERAL PHYSICAL HEALTH DETERIORATION [None]
  - LEUKOCYTOSIS [None]
  - MYOCLONIC EPILEPSY [None]
  - PNEUMONIA ASPIRATION [None]
  - PULMONARY CONGESTION [None]
  - RENAL FAILURE [None]
